FAERS Safety Report 17026583 (Version 1)
Quarter: 2019Q4

REPORT INFORMATION
  Report Type: Spontaneous
  Country: GB (occurrence: GB)
  Receive Date: 20191113
  Receipt Date: 20191113
  Transmission Date: 20200122
  Serious: Yes (Other)
  Sender: FDA-Public Use
  Company Number: GB-DSJP-DSE-2019-143271

PATIENT

DRUGS (3)
  1. FLUCLOXACILLIN [Interacting]
     Active Substance: FLUCLOXACILLIN
     Dosage: 2000 MG, QD
     Route: 048
     Dates: start: 20181008, end: 20181015
  2. EDOXABAN [Suspect]
     Active Substance: EDOXABAN TOSYLATE
     Indication: ATRIAL FIBRILLATION
     Dosage: 60 MG
     Route: 048
     Dates: start: 20180509, end: 20181107
  3. FLUCLOXACILLIN [Interacting]
     Active Substance: FLUCLOXACILLIN
     Indication: CELLULITIS
     Dosage: 2000 MG, QD
     Route: 048
     Dates: start: 20181024, end: 20181107

REACTIONS (4)
  - Drug interaction [Unknown]
  - Melaena [Recovered/Resolved]
  - Drug clearance decreased [Unknown]
  - Gastrointestinal haemorrhage [Recovered/Resolved]

NARRATIVE: CASE EVENT DATE: 20181106
